FAERS Safety Report 7889461-3 (Version None)
Quarter: 2011Q4

REPORT INFORMATION
  Report Type: 
  Country: None (occurrence: None)
  Receive Date: 20111103
  Receipt Date: 20111031
  Transmission Date: 20120403
  Serious: Yes (Death, Other)
  Sender: FDA-Public Use
  Company Number: PHHY2011US96287

PATIENT
  Age: 80 Year
  Sex: Male

DRUGS (2)
  1. COLCHICINE [Interacting]
     Dosage: UNK
  2. AMIODARONE HCL [Suspect]
     Dosage: UNK

REACTIONS (3)
  - DRUG INTERACTION [None]
  - DEATH [None]
  - TOXICITY TO VARIOUS AGENTS [None]
